FAERS Safety Report 12696949 (Version 1)
Quarter: 2016Q3

REPORT INFORMATION
  Report Type: Spontaneous
  Country: US (occurrence: None)
  Receive Date: 20160829
  Receipt Date: 20160829
  Transmission Date: 20161109
  Serious: No
  Sender: FDA-Public Use
  Company Number: None

PATIENT

DRUGS (1)
  1. DRYSOL PERSON AND COVEY INC. [Suspect]
     Active Substance: ALUMINUM CHLORIDE
     Indication: HYPERHIDROSIS
     Dosage: AT BEDTIME APPLIED TO A SURFACE, USUALLY THE SKIN
     Dates: start: 20160827

REACTIONS (1)
  - Application site pain [None]

NARRATIVE: CASE EVENT DATE: 20160828
